FAERS Safety Report 4732829-4 (Version None)
Quarter: 2005Q3

REPORT INFORMATION
  Report Type: 
  Country: None (occurrence: None)
  Receive Date: 20050801
  Receipt Date: 20050714
  Transmission Date: 20060218
  Serious: Yes (Other)
  Sender: FDA-Public Use
  Company Number: 2005100709

PATIENT
  Sex: Female

DRUGS (2)
  1. ADRIAMYCIN PFS [Suspect]
     Indication: BREAST CANCER
     Dosage: 60  MG/M2 (CYCLICAL), INTRAVENOUS
  2. CYCLOPHOSPHAMIDE [Concomitant]

REACTIONS (1)
  - ANGINA PECTORIS [None]
